FAERS Safety Report 25019419 (Version 1)
Quarter: 2025Q1

REPORT INFORMATION
  Report Type: Spontaneous
  Country: CN (occurrence: CN)
  Receive Date: 20250227
  Receipt Date: 20250227
  Transmission Date: 20250408
  Serious: Yes (Hospitalization)
  Sender: TAKEDA
  Company Number: CN-HUTCHMED LIMITED-HMP2025CN00433

PATIENT
  Age: 56 Year
  Sex: Male
  Weight: 58 kg

DRUGS (6)
  1. FRUQUINTINIB [Suspect]
     Active Substance: FRUQUINTINIB
     Indication: Rectal cancer
     Dosage: 3 MILLIGRAM, QD
     Dates: start: 20250122, end: 20250204
  2. TIPIRACIL HYDROCHLORIDE\TRIFLURIDINE [Concomitant]
     Active Substance: TIPIRACIL HYDROCHLORIDE\TRIFLURIDINE
     Indication: Rectal cancer
     Dosage: 15 MILLIGRAM, BID
     Dates: start: 20250122, end: 20250126
  3. TIPIRACIL HYDROCHLORIDE\TRIFLURIDINE [Concomitant]
     Active Substance: TIPIRACIL HYDROCHLORIDE\TRIFLURIDINE
     Dosage: 40 MILLIGRAM, BID
     Dates: start: 20250122, end: 20250126
  4. TIPIRACIL HYDROCHLORIDE\TRIFLURIDINE [Concomitant]
     Active Substance: TIPIRACIL HYDROCHLORIDE\TRIFLURIDINE
     Dosage: 15 MILLIGRAM, BID
     Dates: start: 20250129, end: 20250202
  5. TIPIRACIL HYDROCHLORIDE\TRIFLURIDINE [Concomitant]
     Active Substance: TIPIRACIL HYDROCHLORIDE\TRIFLURIDINE
     Dosage: 40 MILLIGRAM, BID
     Dates: start: 20250129, end: 20250202
  6. SINTILIMAB [Concomitant]
     Active Substance: SINTILIMAB
     Indication: Rectal cancer

REACTIONS (2)
  - White blood cell count decreased [Recovering/Resolving]
  - Platelet count decreased [Recovering/Resolving]

NARRATIVE: CASE EVENT DATE: 20250211
